FAERS Safety Report 14455086 (Version 2)
Quarter: 2018Q1

REPORT INFORMATION
  Report Type: Spontaneous
  Country: US (occurrence: US)
  Receive Date: 20180129
  Receipt Date: 20180214
  Transmission Date: 20180509
  Serious: Yes (Hospitalization)
  Sender: FDA-Public Use
  Company Number: US-VIFOR (INTERNATIONAL) INC.-VIT-2018-00881

PATIENT
  Age: 88 Year
  Sex: Female

DRUGS (14)
  1. FENOFIBRATE. [Concomitant]
     Active Substance: FENOFIBRATE
  2. PARACETAMOL/HYDROCODONE [Concomitant]
  3. LEVOTHYROXINE SODIUM. [Concomitant]
     Active Substance: LEVOTHYROXINE SODIUM
  4. CARVEDILOL. [Concomitant]
     Active Substance: CARVEDILOL
  5. HUMULIN N [Concomitant]
     Active Substance: INSULIN HUMAN
  6. LISINOPRIL. [Concomitant]
     Active Substance: LISINOPRIL
  7. HYDRALAZINE HYDROCHLORIDE. [Concomitant]
     Active Substance: HYDRALAZINE HYDROCHLORIDE
  8. VELTASSA [Suspect]
     Active Substance: PATIROMER
     Indication: HYPERKALAEMIA
     Route: 048
     Dates: start: 20160226
  9. UBIDECARENONE [Concomitant]
     Active Substance: UBIDECARENONE
  10. GLIMEPIRIDE. [Concomitant]
     Active Substance: GLIMEPIRIDE
  11. IRON [Concomitant]
     Active Substance: IRON
  12. AMLODIPINE BESILATE [Concomitant]
     Active Substance: AMLODIPINE BESYLATE
  13. GABAPENTIN. [Concomitant]
     Active Substance: GABAPENTIN
  14. ISOSORBIDE MONONITRATE. [Concomitant]
     Active Substance: ISOSORBIDE MONONITRATE

REACTIONS (3)
  - Pneumonia [Unknown]
  - Cardiac failure congestive [Unknown]
  - Influenza [Unknown]

NARRATIVE: CASE EVENT DATE: 201801
